FAERS Safety Report 9597605 (Version 1)
Quarter: 2013Q4

REPORT INFORMATION
  Report Type: Spontaneous
  Country: US (occurrence: US)
  Receive Date: 20131004
  Receipt Date: 20131004
  Transmission Date: 20140711
  Serious: No
  Sender: FDA-Public Use
  Company Number: US-AMGEN-USASP2013019610

PATIENT
  Age: 44 Year
  Sex: Female
  Weight: 60.77 kg

DRUGS (12)
  1. ENBREL [Suspect]
     Indication: RHEUMATOID ARTHRITIS
     Dosage: 50 MG, QWK
     Route: 058
  2. HUMIRA [Concomitant]
     Indication: RHEUMATOID ARTHRITIS
     Dosage: 40 MG, UNK
  3. PREMARIN [Concomitant]
     Dosage: 0.3 MG, UNK
  4. PREDNISONE [Concomitant]
     Dosage: 10 MG, UNK
  5. OMEPRAZOLE [Concomitant]
     Indication: PEPTIC ULCER
     Dosage: 40 MG, UNK
  6. VALIUM                             /00017001/ [Concomitant]
     Dosage: 10 MG, UNK
  7. PROZAC [Concomitant]
     Dosage: 20 MG, UNK
  8. SEROQUEL XR [Concomitant]
     Dosage: 150 MG, UNK
  9. VITAMIN D                          /00107901/ [Concomitant]
     Dosage: 1000 UNIT, UNK
  10. PERCOCET                           /00867901/ [Concomitant]
     Dosage: 10-650 MG, UNK
  11. CALCIUM [Concomitant]
     Dosage: 500 UNK, UNK
  12. FOLIC ACID [Concomitant]
     Dosage: UNK

REACTIONS (2)
  - Drug ineffective [Unknown]
  - Pain [Unknown]
